FAERS Safety Report 13368984 (Version 6)
Quarter: 2019Q4

REPORT INFORMATION
  Report Type: Report from Study
  Country: US (occurrence: US)
  Receive Date: 20170324
  Receipt Date: 20191126
  Transmission Date: 20200122
  Serious: Yes (Other)
  Sender: FDA-Public Use
  Company Number: PHHY2017US044068

PATIENT
  Age: 53 Year
  Sex: Female

DRUGS (1)
  1. GILENYA [Suspect]
     Active Substance: FINGOLIMOD HYDROCHLORIDE
     Indication: MULTIPLE SCLEROSIS
     Dosage: UNK, QD
     Route: 048

REACTIONS (9)
  - Eczema [Recovered/Resolved]
  - Sebaceous hyperplasia [Recovered/Resolved]
  - Ankle fracture [Unknown]
  - Lymphocyte count decreased [Unknown]
  - Milia [Recovered/Resolved]
  - Diarrhoea [Recovered/Resolved]
  - Dermal cyst [Recovered/Resolved]
  - Keratosis pilaris [Recovered/Resolved]
  - Seborrhoeic keratosis [Recovered/Resolved]

NARRATIVE: CASE EVENT DATE: 20160912
